FAERS Safety Report 6274779-0 (Version None)
Quarter: 2009Q3

REPORT INFORMATION
  Report Type: 
  Country: None (occurrence: None)
  Receive Date: 20090721
  Receipt Date: 20070515
  Transmission Date: 20100115
  Serious: Yes (Other)
  Sender: FDA-Public Use
  Company Number: US-ASTRAZENECA-2006UW27541

PATIENT
  Age: 20829 Day
  Sex: Female
  Weight: 99.3 kg

DRUGS (28)
  1. SEROQUEL [Suspect]
     Indication: SCHIZOPHRENIA
     Dosage: 100 - 500 MG
     Route: 048
     Dates: start: 19980511
  2. SEROQUEL [Suspect]
     Indication: DEPRESSION
     Dosage: 100 - 500 MG
     Route: 048
     Dates: start: 19980511
  3. SEROQUEL [Suspect]
     Dosage: 200-300 MG
     Route: 048
     Dates: start: 19980101
  4. SEROQUEL [Suspect]
     Dosage: 200-300 MG
     Route: 048
     Dates: start: 19980101
  5. HALDOL [Concomitant]
  6. RISPERDAL [Concomitant]
  7. ZYPREXA [Concomitant]
  8. NEURONTIN [Concomitant]
     Dosage: 200 MG, 300 MG THREE TIMES A DAY
     Route: 048
     Dates: start: 20061116
  9. PREVACID [Concomitant]
     Dosage: 15 MG, 30 MG FLUTUATING
     Route: 048
     Dates: start: 19980527
  10. KLONOPIN [Concomitant]
     Route: 048
     Dates: start: 19980820
  11. CARDIZEM [Concomitant]
     Dates: start: 20070405
  12. VASOTEC [Concomitant]
     Dates: start: 20070405
  13. ASPIRIN [Concomitant]
     Dates: start: 20070405
  14. CRESTOR [Concomitant]
     Dates: start: 20070405
  15. ACTOS [Concomitant]
     Dates: start: 20070405
  16. ETODOLAC [Concomitant]
     Dates: start: 20070405
  17. METFORMIN HCL [Concomitant]
     Dates: start: 20070405
  18. KLOR-CON [Concomitant]
     Dates: start: 20070405
  19. FUROSEMIDE [Concomitant]
     Dates: start: 20070405
  20. ADVAIR DISKUS 100/50 [Concomitant]
     Dosage: 250 / 50 TWICE A DAY
     Dates: start: 20070405
  21. PREDNISONE [Concomitant]
     Dosage: TAPERING DOSE
     Dates: start: 20070405
  22. REGULAR INSULIN [Concomitant]
     Dates: start: 20070405
  23. LORAZEPAM [Concomitant]
     Dosage: 1 MG EVERY 8 HOURS AS NEEDED
     Dates: start: 20060220
  24. AVANDAMET [Concomitant]
     Dosage: 4 / 500 ONE PER ORAL
     Dates: start: 20060220
  25. SINGULAIR [Concomitant]
     Dates: start: 20060220
  26. AMARYL [Concomitant]
     Dates: start: 20060220
  27. LEXAPRO [Concomitant]
     Dates: start: 20060220
  28. LYRICA [Concomitant]
     Route: 048
     Dates: start: 20060220

REACTIONS (7)
  - BLOOD GLUCOSE INCREASED [None]
  - DIABETES MELLITUS [None]
  - DIABETIC NEUROPATHY [None]
  - NEUROLEPTIC MALIGNANT SYNDROME [None]
  - NEUROPATHY PERIPHERAL [None]
  - SURGERY [None]
  - TYPE 2 DIABETES MELLITUS [None]
